FAERS Safety Report 22755157 (Version 3)
Quarter: 2025Q3

REPORT INFORMATION
  Report Type: Spontaneous
  Country: US (occurrence: US)
  Receive Date: 20230727
  Receipt Date: 20250703
  Transmission Date: 20251021
  Serious: No
  Sender: BIOGEN
  Company Number: US-BIOGEN-2022BI01084687

PATIENT
  Age: 52 Year
  Sex: Male

DRUGS (1)
  1. TECFIDERA [Suspect]
     Active Substance: DIMETHYL FUMARATE
     Indication: Multiple sclerosis
     Route: 050

REACTIONS (5)
  - Bone pain [Unknown]
  - Paraesthesia [Unknown]
  - Pain [Recovered/Resolved]
  - Hypersensitivity [Unknown]
  - Flushing [Unknown]

NARRATIVE: CASE EVENT DATE: 20211201
